FAERS Safety Report 4632674-4 (Version None)
Quarter: 2005Q2

REPORT INFORMATION
  Report Type: 
  Country: None (occurrence: None)
  Receive Date: 20050331
  Receipt Date: 20041028
  Transmission Date: 20051028
  Serious: Yes (Other)
  Sender: FDA-Public Use
  Company Number: 200415246BCC

PATIENT
  Age: 35 Year
  Sex: Female
  Weight: 68.0396 kg

DRUGS (7)
  1. MIDOL [Suspect]
     Indication: DYSMENORRHOEA
     Dosage: 220 MG, ONCE, ORAL
     Route: 048
     Dates: start: 20041025
  2. PREVACID [Concomitant]
  3. SOMA [Concomitant]
  4. TIZANIDINE [Concomitant]
  5. EFFEXOR [Concomitant]
  6. PROPACET 100 [Concomitant]
  7. BEXTRA [Concomitant]

REACTIONS (5)
  - DYSPHAGIA [None]
  - HYPERSENSITIVITY [None]
  - PRURITUS GENERALISED [None]
  - SWELLING FACE [None]
  - THROAT TIGHTNESS [None]
